FAERS Safety Report 5405013-9 (Version None)
Quarter: 2007Q3

REPORT INFORMATION
  Report Type: 
  Country: None (occurrence: None)
  Receive Date: 20070801
  Receipt Date: 20070717
  Transmission Date: 20080115
  Serious: No
  Sender: FDA-Public Use
  Company Number: US-1163665

PATIENT
  Sex: Female

DRUGS (1)
  1. MIOSTAT [Suspect]
     Dosage: INTRAOCULAR

REACTIONS (2)
  - MACULAR OEDEMA [None]
  - MIOSIS [None]
